FAERS Safety Report 5470816-1 (Version None)
Quarter: 2007Q3

REPORT INFORMATION
  Report Type: 
  Country: None (occurrence: None)
  Receive Date: 20070820
  Receipt Date: 20070423
  Transmission Date: 20080115
  Serious: No
  Sender: FDA-Public Use
  Company Number: WAES 0704USA05204

PATIENT
  Age: 71 Year
  Sex: Female

DRUGS (8)
  1. JANUVIA [Suspect]
     Indication: DIABETES MELLITUS
     Dosage: 100 MG/DAILY/PO
     Route: 048
     Dates: start: 20070123, end: 20070101
  2. AMARYL [Concomitant]
  3. GLUCOPHAGE [Concomitant]
  4. LIPITOR [Concomitant]
  5. SINGULAIR [Concomitant]
  6. TOPROL-XL [Concomitant]
  7. THERAPY UNSPECIFIED [Concomitant]
  8. ALLERGENIC EXTRACT [Concomitant]

REACTIONS (1)
  - PRURITUS [None]
